FAERS Safety Report 23370066 (Version 1)
Quarter: 2024Q1

REPORT INFORMATION
  Report Type: Spontaneous
  Country: TR (occurrence: TR)
  Receive Date: 20240105
  Receipt Date: 20240105
  Transmission Date: 20240409
  Serious: Yes (Death, Life-Threatening, Hospitalization, Other)
  Sender: FDA-Public Use
  Company Number: TR-Stemline Therapeutics, Inc.-2023ST005364

PATIENT
  Age: 58 Year
  Sex: Female

DRUGS (5)
  1. ORSERDU [Suspect]
     Active Substance: ELACESTRANT
     Indication: Breast cancer metastatic
     Dosage: UNKNOWN
     Route: 048
     Dates: start: 20231011, end: 20231211
  2. ORSERDU [Suspect]
     Active Substance: ELACESTRANT
     Indication: Breast cancer metastatic
  3. ORSERDU [Suspect]
     Active Substance: ELACESTRANT
     Indication: Breast cancer metastatic
  4. ATORVASTATIN [Concomitant]
     Active Substance: ATORVASTATIN
     Indication: Product used for unknown indication
     Dosage: 40 MG
  5. LUSTRAL [Concomitant]
     Active Substance: SERTRALINE HYDROCHLORIDE
     Indication: Product used for unknown indication
     Dosage: 50 MG

REACTIONS (7)
  - Death [Fatal]
  - Pleural effusion [Recovered/Resolved]
  - Dyspnoea [Unknown]
  - Dysphagia [Unknown]
  - Pneumonia [Unknown]
  - Therapy partial responder [Unknown]
  - Condition aggravated [Unknown]
